FAERS Safety Report 10554878 (Version 2)
Quarter: 2014Q4

REPORT INFORMATION
  Report Type: Spontaneous
  Country: US (occurrence: US)
  Receive Date: 20141030
  Receipt Date: 20141223
  Transmission Date: 20150529
  Serious: Yes (Other)
  Sender: FDA-Public Use
  Company Number: US-TEVA-519000USA

PATIENT
  Age: 38 Year
  Sex: Female
  Weight: 61.29 kg

DRUGS (1)
  1. PARAGARD T380A [Suspect]
     Active Substance: COPPER
     Indication: CONTRACEPTION
     Route: 015
     Dates: start: 20090417, end: 20141022

REACTIONS (4)
  - Device dislocation [Recovered/Resolved]
  - Cyst [Recovered/Resolved]
  - Device breakage [Unknown]
  - Pelvic pain [Recovered/Resolved]

NARRATIVE: CASE EVENT DATE: 20141014
